FAERS Safety Report 17537858 (Version 1)
Quarter: 2020Q1

REPORT INFORMATION
  Report Type: Spontaneous
  Country: US (occurrence: US)
  Receive Date: 20200312
  Receipt Date: 20200312
  Transmission Date: 20200409
  Serious: Yes (Other)
  Sender: FDA-Public Use
  Company Number: None

PATIENT
  Age: 74 Year
  Sex: Female

DRUGS (1)
  1. BEOVU [Suspect]
     Active Substance: BROLUCIZUMAB-DBLL
     Indication: NEOVASCULAR AGE-RELATED MACULAR DEGENERATION
     Dosage: ?          OTHER FREQUENCY:MONTHLY;?
     Route: 047
     Dates: start: 20191022, end: 20200310

REACTIONS (2)
  - Ocular vasculitis [None]
  - Retinal artery occlusion [None]

NARRATIVE: CASE EVENT DATE: 20200310
